FAERS Safety Report 21707553 (Version 2)
Quarter: 2023Q1

REPORT INFORMATION
  Report Type: Report from Study
  Country: US (occurrence: US)
  Receive Date: 20221209
  Receipt Date: 20230104
  Transmission Date: 20230417
  Serious: Yes (Other)
  Sender: FDA-Public Use
  Company Number: US-PFIZER INC-202201354148

PATIENT
  Age: 40 Year
  Sex: Female

DRUGS (2)
  1. BRAFTOVI [Suspect]
     Active Substance: ENCORAFENIB
     Dosage: 450 MG, 1X/DAY (TAKE 6 CAPSULES (450 MG TOTAL) ONCE DAILY)
     Dates: start: 20221114
  2. MEKTOVI [Suspect]
     Active Substance: BINIMETINIB
     Dosage: 45 MG, 2X/DAY

REACTIONS (8)
  - Blindness [Unknown]
  - Product dose omission issue [Unknown]
  - Product use complaint [Unknown]
  - Vision blurred [Unknown]
  - Impaired driving ability [Unknown]
  - Nausea [Unknown]
  - Product size issue [Unknown]
  - Rash [Unknown]

NARRATIVE: CASE EVENT DATE: 20221115
